FAERS Safety Report 9931405 (Version 1)
Quarter: 2014Q1

REPORT INFORMATION
  Report Type: Report from Study
  Country: US (occurrence: US)
  Receive Date: 20140228
  Receipt Date: 20140228
  Transmission Date: 20141002
  Serious: Yes (Other)
  Sender: FDA-Public Use
  Company Number: US-ROCHE-1344214

PATIENT
  Sex: Female

DRUGS (13)
  1. LUCENTIS [Suspect]
     Indication: RETINAL VEIN OCCLUSION
     Route: 050
     Dates: start: 20110301
  2. LUCENTIS [Suspect]
     Indication: DIABETIC EYE DISEASE
  3. LUCENTIS [Suspect]
     Indication: DIABETIC RETINOPATHY
  4. AVASTIN [Suspect]
     Indication: PRODUCT USED FOR UNKNOWN INDICATION
     Route: 065
  5. VYTORIN [Concomitant]
     Route: 048
  6. LISINOPRIL [Concomitant]
     Route: 048
  7. METFORMIN HYDROCHLORIDE/SAXAGLIPTIN [Concomitant]
     Route: 048
  8. INSULIN NPH [Concomitant]
     Route: 058
  9. MYDRIACYL [Concomitant]
  10. NEO-SYNEPHRINE [Concomitant]
  11. POVIDONE IODINE [Concomitant]
  12. HYDROXYPROPYL METHYLCELLULOSE [Concomitant]
     Dosage: INSTILL 1 DROP INTO OU AS NEEDED.
     Route: 047
  13. LIDOCAINE [Concomitant]
     Indication: ANAESTHESIA

REACTIONS (10)
  - Macular oedema [Unknown]
  - Vision blurred [Unknown]
  - Retinal haemorrhage [Unknown]
  - Dry eye [Unknown]
  - Cataract [Unknown]
  - Retinal vein occlusion [Unknown]
  - Maculopathy [Unknown]
  - Cataract nuclear [Unknown]
  - Eye pain [Unknown]
  - Retinal disorder [Unknown]
